FAERS Safety Report 25007800 (Version 1)
Quarter: 2025Q1

REPORT INFORMATION
  Report Type: Spontaneous
  Country: US (occurrence: US)
  Receive Date: 20250225
  Receipt Date: 20250225
  Transmission Date: 20250408
  Serious: No
  Sender: TEVA
  Company Number: US-TEVA-VS-3295024

PATIENT
  Age: 63 Year
  Sex: Female

DRUGS (1)
  1. AJOVY [Suspect]
     Active Substance: FREMANEZUMAB-VFRM
     Indication: Product used for unknown indication
     Dosage: 225/1.5MG/ML, START DATE:  2024-05(AROUND THE END OF MAY)
     Route: 058
     Dates: start: 202405, end: 20250109

REACTIONS (1)
  - Injection site reaction [Recovered/Resolved]
